FAERS Safety Report 7864643-5 (Version None)
Quarter: 2011Q4

REPORT INFORMATION
  Report Type: 
  Country: None (occurrence: None)
  Receive Date: 20111028
  Receipt Date: 20111024
  Transmission Date: 20120403
  Serious: Yes (Other)
  Sender: FDA-Public Use
  Company Number: US-SANOFI-AVENTIS-2011SA070230

PATIENT
  Age: 25 Year
  Sex: Female

DRUGS (2)
  1. KEPPRA [Concomitant]
  2. LOVENOX [Suspect]
     Indication: CEREBRAL THROMBOSIS
     Route: 058
     Dates: start: 20110701, end: 20111020

REACTIONS (5)
  - DRUG DOSE OMISSION [None]
  - CEREBRAL THROMBOSIS [None]
  - MATERNAL EXPOSURE DURING PREGNANCY [None]
  - CONVULSION [None]
  - INTRA-UTERINE DEATH [None]
